FAERS Safety Report 5722940-3 (Version None)
Quarter: 2008Q2

REPORT INFORMATION
  Report Type: 
  Country: None (occurrence: None)
  Receive Date: 20080430
  Receipt Date: 20080428
  Transmission Date: 20081010
  Serious: Yes (Hospitalization)
  Sender: FDA-Public Use
  Company Number: FR-RANBAXY-2008US-14097

PATIENT

DRUGS (12)
  1. VERAPAMIL HYDROCHLORIDE [Suspect]
     Indication: HYPERTENSION
  2. MYCOPHENOLIC ACID [Suspect]
     Indication: RENAL TRANSPLANT
     Dosage: 360 MG, QD
     Route: 048
  3. PRAVASTATINE RANBAXY 20MG COMPRIME SECABLE [Suspect]
     Indication: DYSLIPIDAEMIA
     Dosage: 20 MG, QD
     Route: 048
  4. ALLOPURINOL RPG 200MG COMPRIME [Suspect]
     Indication: GOUT
     Dosage: 200.000000 MG, QD
     Route: 048
  5. PREDNISOLONE RPG 5MG COMPRIME EFFERVESCENT [Suspect]
     Indication: COMPLICATIONS OF TRANSPLANTED KIDNEY
     Dosage: 5.000000 MG, QD
     Route: 048
  6. TACROLIMUS [Suspect]
     Indication: COMPLICATIONS OF TRANSPLANTED KIDNEY
     Dosage: 1 MG, QD
     Route: 048
  7. ESOMEPRAZOLE [Suspect]
     Indication: GASTROOESOPHAGEAL REFLUX DISEASE
     Dosage: 40.000000 MG, QD
     Route: 048
  8. ALFUZOSINE RANBAXY LP 10 MG COMPRIME A LIBERATION PROLONGEE [Suspect]
     Indication: BENIGN PROSTATIC HYPERPLASIA
     Dosage: 10.000000 MG, QD
     Route: 048
  9. ACETYLSALICYLIC ACID SRT [Concomitant]
     Indication: DRUG USE FOR UNKNOWN INDICATION
     Route: 048
  10. FUROSEMIDE [Concomitant]
     Indication: DRUG USE FOR UNKNOWN INDICATION
     Route: 048
  11. SODIUM SULFONATE [Concomitant]
     Indication: DRUG USE FOR UNKNOWN INDICATION
     Route: 048
  12. ZOLPIDEM [Concomitant]
     Indication: DRUG USE FOR UNKNOWN INDICATION

REACTIONS (9)
  - DIARRHOEA [None]
  - GENERAL PHYSICAL HEALTH DETERIORATION [None]
  - HYPOXIA [None]
  - INFLAMMATION [None]
  - INTERSTITIAL LUNG DISEASE [None]
  - LUNG DISORDER [None]
  - RALES [None]
  - RENAL IMPAIRMENT [None]
  - VOMITING [None]
